FAERS Safety Report 6600183-9 (Version None)
Quarter: 2010Q1

REPORT INFORMATION
  Report Type: 
  Country: None (occurrence: None)
  Receive Date: 20100224
  Receipt Date: 20100216
  Transmission Date: 20100710
  Serious: Yes (Hospitalization)
  Sender: FDA-Public Use
  Company Number: B0604877A

PATIENT
  Sex: Male

DRUGS (13)
  1. LAMICTAL CD [Suspect]
     Indication: TEMPORAL LOBE EPILEPSY
     Dosage: 25MG PER DAY
     Route: 048
     Dates: start: 20090514, end: 20090521
  2. LAMICTAL CD [Suspect]
     Dosage: 25MG PER DAY
     Route: 048
     Dates: start: 20090522, end: 20090611
  3. LAMICTAL CD [Suspect]
     Dosage: 25MG TWICE PER DAY
     Route: 048
     Dates: start: 20090602, end: 20090616
  4. LAMICTAL CD [Suspect]
     Route: 048
     Dates: start: 20090617, end: 20090630
  5. LAMICTAL CD [Suspect]
     Dosage: 50MG TWICE PER DAY
     Route: 048
     Dates: start: 20090701, end: 20090818
  6. LAMICTAL CD [Suspect]
     Dosage: 25MG PER DAY
     Route: 048
     Dates: start: 20090819, end: 20090825
  7. LAMICTAL CD [Suspect]
     Dosage: 75MG TWICE PER DAY
     Route: 048
     Dates: start: 20090826, end: 20091013
  8. LAMICTAL CD [Suspect]
     Dosage: 100MG TWICE PER DAY
     Route: 048
     Dates: start: 20091014, end: 20091108
  9. LAMICTAL CD [Suspect]
     Dosage: 25MG TWICE PER DAY
     Route: 048
     Dates: start: 20091109, end: 20091111
  10. TEGRETOL [Suspect]
     Indication: TEMPORAL LOBE EPILEPSY
     Dosage: 200MG PER DAY
     Route: 048
     Dates: start: 20091028, end: 20091108
  11. TEGRETOL [Suspect]
     Dosage: 200MG TWICE PER DAY
     Route: 048
     Dates: start: 20091109, end: 20091110
  12. DEPAKENE [Concomitant]
     Indication: TEMPORAL LOBE EPILEPSY
     Route: 065
     Dates: start: 20090201
  13. DIAZEPAM [Concomitant]
     Route: 048
     Dates: start: 20090602, end: 20091110

REACTIONS (12)
  - CONJUNCTIVAL HYPERAEMIA [None]
  - DRUG ERUPTION [None]
  - ERYTHEMA [None]
  - HEPATIC FUNCTION ABNORMAL [None]
  - MALAISE [None]
  - NEUTROPHIL COUNT DECREASED [None]
  - PLATELET COUNT DECREASED [None]
  - PYREXIA [None]
  - RASH [None]
  - RASH PAPULAR [None]
  - VIRAL INFECTION [None]
  - WHITE BLOOD CELL COUNT DECREASED [None]
